FAERS Safety Report 19871235 (Version 2)
Quarter: 2025Q2

REPORT INFORMATION
  Report Type: Spontaneous
  Country: IT (occurrence: IT)
  Receive Date: 20210923
  Receipt Date: 20250625
  Transmission Date: 20250716
  Serious: Yes (Other)
  Sender: AUROBINDO
  Company Number: IT-PURDUE PHARMA-USA-2021-0282953

PATIENT
  Age: 36 Year
  Sex: Female

DRUGS (2)
  1. OXYCODONE [Suspect]
     Active Substance: OXYCODONE
     Indication: Pain in extremity
     Route: 048
  2. NALOXONE [Suspect]
     Active Substance: NALOXONE
     Indication: Pain in extremity
     Route: 065

REACTIONS (1)
  - Hepatotoxicity [Unknown]
